FAERS Safety Report 22539601 (Version 1)
Quarter: 2023Q2

REPORT INFORMATION
  Report Type: Spontaneous
  Country: US (occurrence: US)
  Receive Date: 20230609
  Receipt Date: 20230609
  Transmission Date: 20230722
  Serious: No
  Sender: FDA-Public Use
  Company Number: US-SPECGX-T202201341

PATIENT
  Age: 78 Year
  Sex: Female
  Weight: 72 kg

DRUGS (2)
  1. ACETAMINOPHEN\HYDROCODONE [Suspect]
     Active Substance: ACETAMINOPHEN\HYDROCODONE
     Indication: Compression fracture
     Dosage: THREE OR FOUR TABLETS EVERY DAY
     Route: 065
     Dates: start: 20220507, end: 20220514
  2. ACETAMINOPHEN\HYDROCODONE [Suspect]
     Active Substance: ACETAMINOPHEN\HYDROCODONE
     Dosage: HALF TABLET EVERY COUPLE OF DAYS
     Route: 065

REACTIONS (4)
  - Somnolence [Unknown]
  - Speech disorder [Unknown]
  - Feeling abnormal [Unknown]
  - Headache [Unknown]

NARRATIVE: CASE EVENT DATE: 20220507
